FAERS Safety Report 16739336 (Version 1)
Quarter: 2019Q3

REPORT INFORMATION
  Report Type: Spontaneous
  Country: US (occurrence: US)
  Receive Date: 20190826
  Receipt Date: 20190826
  Transmission Date: 20191005
  Serious: No
  Sender: FDA-Public Use
  Company Number: US-GLAXOSMITHKLINE-US2019153393

PATIENT
  Age: 67 Year
  Sex: Male

DRUGS (1)
  1. LAMISIL AT CONTINUOUS SPRAY [Suspect]
     Active Substance: TERBINAFINE HYDROCHLORIDE
     Indication: FUNGAL INFECTION
     Dosage: UNK UNK, BID
     Dates: start: 20190723, end: 20190819

REACTIONS (6)
  - Skin discolouration [Unknown]
  - Burning sensation [Unknown]
  - Adverse drug reaction [Unknown]
  - Expired product administered [Unknown]
  - Incorrect product administration duration [Unknown]
  - Erythema [Unknown]
